FAERS Safety Report 5919832-3 (Version None)
Quarter: 2008Q4

REPORT INFORMATION
  Report Type: 
  Country: None (occurrence: None)
  Receive Date: 20081015
  Receipt Date: 20081003
  Transmission Date: 20090506
  Serious: Yes (Other)
  Sender: FDA-Public Use
  Company Number: GB-PFIZER INC-2008081783

PATIENT
  Sex: Female
  Weight: 56.5 kg

DRUGS (1)
  1. CHANTIX [Suspect]
     Indication: EX-TOBACCO USER
     Route: 048
     Dates: start: 20080617, end: 20080708

REACTIONS (3)
  - GUILLAIN-BARRE SYNDROME [None]
  - NAUSEA [None]
  - SENSORY LOSS [None]
